FAERS Safety Report 23463813 (Version 2)
Quarter: 2024Q1

REPORT INFORMATION
  Report Type: Spontaneous
  Country: CN (occurrence: CN)
  Receive Date: 20240201
  Receipt Date: 20240212
  Transmission Date: 20240410
  Serious: Yes (Life-Threatening, Hospitalization, Other)
  Sender: FDA-Public Use
  Company Number: CN-002147023-NVSC2024CN012062

PATIENT
  Age: 66 Year
  Sex: Female
  Weight: 55 kg

DRUGS (4)
  1. ACLASTA [Suspect]
     Active Substance: ZOLEDRONIC ACID
     Dosage: 5 MG, Q12MO
     Route: 041
     Dates: start: 20240101
  2. ACLASTA [Suspect]
     Active Substance: ZOLEDRONIC ACID
     Indication: Osteoporosis
     Dosage: 5 MG, Q12MO (100ML:5MG * 1 BOTTLE/BOX, FOR 1 BOTTLE , QD) ROUTE OF ADMIN (FREE TEXT): INTRAVENOUS DR
     Route: 041
     Dates: start: 20231231, end: 20231231
  3. LIDOCAINE [Concomitant]
     Active Substance: LIDOCAINE
     Indication: Product used for unknown indication
     Route: 065
  4. LIDOCAINE [Concomitant]
     Active Substance: LIDOCAINE
     Indication: Product used for unknown indication
     Route: 065

REACTIONS (44)
  - Gait disturbance [Recovering/Resolving]
  - Pallor [Recovering/Resolving]
  - Dizziness [Recovering/Resolving]
  - Nasopharyngitis [Recovering/Resolving]
  - Pulmonary thrombosis [Recovering/Resolving]
  - Pulmonary infarction [Recovered/Resolved]
  - Pain in extremity [Recovering/Resolving]
  - Pain [Recovering/Resolving]
  - Troponin I increased [Recovering/Resolving]
  - Blood fibrinogen [Recovered/Resolved]
  - Chest discomfort [Recovering/Resolving]
  - Pneumonia [Recovering/Resolving]
  - Respiratory failure [Unknown]
  - Pulmonary embolism [Recovering/Resolving]
  - Musculoskeletal stiffness [Recovering/Resolving]
  - Fibrin D dimer increased [Recovering/Resolving]
  - Seizure [Recovering/Resolving]
  - Feeling abnormal [Unknown]
  - Muscular weakness [Unknown]
  - Nausea [Recovering/Resolving]
  - Brain natriuretic peptide increased [Unknown]
  - Dyspnoea [Recovering/Resolving]
  - Atelectasis [Recovering/Resolving]
  - Poor quality sleep [Unknown]
  - Activated partial thromboplastin time prolonged [Not Recovered/Not Resolved]
  - Vertigo positional [Recovering/Resolving]
  - Otolithiasis [Unknown]
  - Asthenia [Recovering/Resolving]
  - Balance disorder [Recovered/Resolved]
  - Headache [Recovered/Resolved]
  - Tricuspid valve incompetence [Unknown]
  - Rib fracture [Not Recovered/Not Resolved]
  - Chest pain [Recovered/Resolved]
  - Pleural effusion [Recovered/Resolved]
  - Pulmonary mass [Unknown]
  - Deep vein thrombosis [Unknown]
  - Malnutrition [Unknown]
  - Cerebral atrophy [Unknown]
  - Thrombin time prolonged [Recovering/Resolving]
  - Tachypnoea [Recovered/Resolved]
  - Nephrolithiasis [Unknown]
  - Cholelithiasis [Unknown]
  - Cardiomegaly [Unknown]
  - Renal cyst [Unknown]

NARRATIVE: CASE EVENT DATE: 20240102
